FAERS Safety Report 10159768 (Version 1)
Quarter: 2014Q2

REPORT INFORMATION
  Report Type: Spontaneous
  Country: US (occurrence: IR)
  Receive Date: 20140508
  Receipt Date: 20140508
  Transmission Date: 20141212
  Serious: No
  Sender: FDA-Public Use
  Company Number: US-GLAXOSMITHKLINE-A1026703A

PATIENT
  Sex: Female

DRUGS (1)
  1. TYKERB [Suspect]
     Indication: PRODUCT USED FOR UNKNOWN INDICATION
     Dosage: 1U TWICE PER DAY
     Route: 065
     Dates: start: 2012

REACTIONS (4)
  - Palpitations [Unknown]
  - Condition aggravated [Unknown]
  - Drug intolerance [Unknown]
  - Drug administration error [Unknown]
